FAERS Safety Report 10597388 (Version 1)
Quarter: 2014Q4

REPORT INFORMATION
  Report Type: Spontaneous
  Country: GB (occurrence: GB)
  Receive Date: 20141121
  Receipt Date: 20141121
  Transmission Date: 20150529
  Serious: Yes (Hospitalization, Other)
  Sender: FDA-Public Use
  Company Number: CHNY2014GB001166

PATIENT
  Age: 66 Year
  Sex: Female
  Weight: 51.9 kg

DRUGS (2)
  1. TERBINAFINE [Suspect]
     Active Substance: TERBINAFINE
     Indication: FUNGAL INFECTION
     Dosage: 250 MG, QD
     Route: 048
     Dates: start: 20141021
  2. TERBINAFINE [Suspect]
     Active Substance: TERBINAFINE
     Dosage: UNK
     Route: 061

REACTIONS (5)
  - Skin exfoliation [Unknown]
  - Peripheral swelling [Unknown]
  - Inflammation [Unknown]
  - Erythema [Unknown]
  - Skin reaction [Not Recovered/Not Resolved]

NARRATIVE: CASE EVENT DATE: 20141022
